FAERS Safety Report 24239242 (Version 2)
Quarter: 2024Q3

REPORT INFORMATION
  Report Type: Spontaneous
  Country: CN (occurrence: CN)
  Receive Date: 20240822
  Receipt Date: 20240829
  Transmission Date: 20241017
  Serious: Yes (Other)
  Sender: ROCHE
  Company Number: CN-BoehringerIngelheim-2024-BI-046812

PATIENT
  Age: 43 Year
  Sex: Male
  Weight: 60.0 kg

DRUGS (1)
  1. ALTEPLASE [Suspect]
     Active Substance: ALTEPLASE
     Indication: Cerebral infarction
     Route: 042
     Dates: end: 20240721

REACTIONS (2)
  - Central nervous system lesion [Recovering/Resolving]
  - Brain stem haemorrhage [Unknown]

NARRATIVE: CASE EVENT DATE: 20240721
